FAERS Safety Report 8190127-3 (Version None)
Quarter: 2012Q1

REPORT INFORMATION
  Report Type: 
  Country: None (occurrence: None)
  Receive Date: 20120305
  Receipt Date: 20120222
  Transmission Date: 20120608
  Serious: Yes (Disabling)
  Sender: FDA-Public Use
  Company Number: 2012SP010301

PATIENT
  Age: 21 Year
  Sex: Female

DRUGS (1)
  1. IMPLANON [Suspect]
     Indication: CONTRACEPTION
     Dosage: 1 DF; SBDE
     Dates: start: 20110101

REACTIONS (4)
  - ANAEMIA [None]
  - IRRITABILITY [None]
  - MOOD ALTERED [None]
  - MENSTRUATION IRREGULAR [None]
